FAERS Safety Report 12901946 (Version 2)
Quarter: 2016Q4

REPORT INFORMATION
  Report Type: Report from Study
  Country: IL (occurrence: IL)
  Receive Date: 20161102
  Receipt Date: 20161111
  Transmission Date: 20170207
  Serious: Yes (Hospitalization, Other)
  Sender: FDA-Public Use
  Company Number: IL-ROCHE-1848849

PATIENT
  Age: 8 Year
  Sex: Male
  Weight: 39.5 kg

DRUGS (7)
  1. SOLU-MEDROL [Concomitant]
     Active Substance: METHYLPREDNISOLONE SODIUM SUCCINATE
  2. PROMETHAZINE [Concomitant]
     Active Substance: PROMETHAZINE\PROMETHAZINE HYDROCHLORIDE
  3. PREDNISONE. [Concomitant]
     Active Substance: PREDNISONE
     Indication: NEPHROTIC SYNDROME
     Dosage: ALTERNATE DOSES OF 40MG AND 60 MG DAILY
     Route: 065
     Dates: start: 201502, end: 201611
  4. LOSEC [Concomitant]
     Active Substance: OMEPRAZOLE
  5. CALCIUM CITRATE [Concomitant]
     Active Substance: CALCIUM CITRATE
     Route: 065
  6. PARACETAMOL [Concomitant]
     Active Substance: ACETAMINOPHEN
  7. MABTHERA [Suspect]
     Active Substance: RITUXIMAB
     Indication: NEPHROTIC SYNDROME
     Route: 042
     Dates: start: 20160808

REACTIONS (7)
  - Abdominal pain [Recovered/Resolved]
  - Headache [Unknown]
  - Pallor [Recovered/Resolved]
  - Hypotension [Recovered/Resolved]
  - Immunoglobulins decreased [Unknown]
  - Pyrexia [Recovered/Resolved]
  - Off label use [Unknown]

NARRATIVE: CASE EVENT DATE: 20160808
